FAERS Safety Report 18119683 (Version 1)
Quarter: 2020Q3

REPORT INFORMATION
  Report Type: Spontaneous
  Country: CZ (occurrence: CZ)
  Receive Date: 20200806
  Receipt Date: 20200806
  Transmission Date: 20201103
  Serious: Yes (Other)
  Sender: FDA-Public Use
  Company Number: CZ-JNJFOC-20200807675

PATIENT
  Age: 71 Year
  Sex: Female

DRUGS (8)
  1. ELIQUIS [Suspect]
     Active Substance: APIXABAN
     Indication: THROMBOSIS PROPHYLAXIS
  2. XARELTO [Suspect]
     Active Substance: RIVAROXABAN
     Indication: THROMBOSIS PROPHYLAXIS
     Dosage: 20 MG, QD
     Route: 048
     Dates: start: 20190308, end: 20190325
  3. TOLURA [Concomitant]
     Active Substance: TELMISARTAN
     Dosage: HALF OF TABLET IN THE MORNING
     Dates: start: 20190310, end: 20190317
  4. RYTMONORM [Concomitant]
     Active Substance: PROPAFENONE
     Dosage: DOSAGE 3X1/2 DAILY TID
     Dates: start: 20190313, end: 20190316
  5. XARELTO [Suspect]
     Active Substance: RIVAROXABAN
     Indication: ARRHYTHMIA
  6. OMEPRAZOL [OMEPRAZOLE] [Concomitant]
     Active Substance: OMEPRAZOLE
     Dosage: 20 MG, QD
     Dates: start: 20181230
  7. ELIQUIS [Suspect]
     Active Substance: APIXABAN
     Indication: ARRHYTHMIA
     Dosage: 5 MG, BID
     Route: 048
     Dates: start: 20190326
  8. LATANOPROST. [Concomitant]
     Active Substance: LATANOPROST
     Dosage: UNK
     Route: 031

REACTIONS (4)
  - Abdominal discomfort [Not Recovered/Not Resolved]
  - Chest discomfort [Recovered/Resolved]
  - Liver disorder [Recovered/Resolved]
  - Nausea [Not Recovered/Not Resolved]

NARRATIVE: CASE EVENT DATE: 20190312
